FAERS Safety Report 13737159 (Version 3)
Quarter: 2017Q3

REPORT INFORMATION
  Report Type: Spontaneous
  Country: DE (occurrence: DE)
  Receive Date: 20170710
  Receipt Date: 20170824
  Transmission Date: 20171127
  Serious: Yes (Other)
  Sender: FDA-Public Use
  Company Number: DE-TEIKOKU PHARMA USA-TPU2017-00394

PATIENT
  Age: 65 Year
  Sex: Male

DRUGS (1)
  1. VERSATIS [Suspect]
     Active Substance: LIDOCAINE
     Indication: PAIN IN EXTREMITY
     Route: 061
     Dates: start: 20170115

REACTIONS (2)
  - Hepatic enzyme increased [Not Recovered/Not Resolved]
  - Off label use [Unknown]

NARRATIVE: CASE EVENT DATE: 20170115
